FAERS Safety Report 21890270 (Version 1)
Quarter: 2023Q1

REPORT INFORMATION
  Report Type: Spontaneous
  Country: US (occurrence: US)
  Receive Date: 20230120
  Receipt Date: 20230120
  Transmission Date: 20230418
  Serious: No
  Sender: FDA-Public Use
  Company Number: US-SANOFI-01449587

PATIENT
  Age: 65 Year
  Sex: Female

DRUGS (1)
  1. TOUJEO [Suspect]
     Active Substance: INSULIN GLARGINE
     Indication: Type 1 diabetes mellitus
     Dosage: 25 UNITS 1X AND DRUG TREATMENT DURATION:THREE YEARS

REACTIONS (4)
  - Fall [Unknown]
  - Foot fracture [Unknown]
  - Glycosylated haemoglobin increased [Unknown]
  - Intentional product use issue [Unknown]
